FAERS Safety Report 6976768-7 (Version None)
Quarter: 2010Q3

REPORT INFORMATION
  Report Type: 
  Country: None (occurrence: None)
  Receive Date: 20100910
  Receipt Date: 20100902
  Transmission Date: 20110219
  Serious: Yes (Hospitalization, Other)
  Sender: FDA-Public Use
  Company Number: PHHY2010FR49958

PATIENT
  Sex: Female
  Weight: 52 kg

DRUGS (17)
  1. LEPONEX [Suspect]
     Indication: SCHIZOPHRENIA
     Dosage: 100 MG, UNK
     Dates: start: 20100327
  2. LEPONEX [Suspect]
     Indication: DELIRIUM
     Dosage: 150 MG, UNK
     Dates: start: 20100403, end: 20100409
  3. LEPONEX [Suspect]
     Indication: COMPLETED SUICIDE
     Dosage: 25 MG, UNK
     Dates: start: 20100617, end: 20100624
  4. LEPONEX [Suspect]
     Dosage: 75 MG
     Dates: start: 20100624
  5. LEPONEX [Suspect]
     Dosage: 50 MG, UNK
     Dates: start: 20100629, end: 20100701
  6. LEPONEX [Suspect]
     Dosage: 100 MG, UNK
     Dates: start: 20100701, end: 20100708
  7. LEPONEX [Suspect]
     Dosage: 125 MG, UNK
     Dates: start: 20100708, end: 20100715
  8. LEPONEX [Suspect]
     Dosage: 150 MG
     Dates: start: 20100715, end: 20100722
  9. LEPONEX [Suspect]
     Dosage: 175 MG
     Dates: start: 20100722
  10. LEPONEX [Suspect]
     Dosage: UNK
     Dates: start: 20100614
  11. RIVOTRIL [Suspect]
     Indication: ANXIETY
     Dosage: 4 MG/DAY
     Route: 048
     Dates: start: 20100317, end: 20100420
  12. MEPRONIZINE [Concomitant]
  13. SERESTA [Concomitant]
     Dosage: 200 MG
     Dates: start: 20100611
  14. SERESTA [Concomitant]
     Dosage: 125 MG
     Dates: start: 20100701
  15. SERESTA [Concomitant]
     Dosage: 50 MG
     Dates: start: 20100708
  16. LYSANXIA [Concomitant]
     Dosage: 20 MG
     Dates: start: 20100722
  17. LYSANXIA [Concomitant]
     Dosage: 15 MG
     Dates: start: 20100729

REACTIONS (16)
  - ALANINE AMINOTRANSFERASE INCREASED [None]
  - ASPARTATE AMINOTRANSFERASE INCREASED [None]
  - BLOOD ALKALINE PHOSPHATASE INCREASED [None]
  - CHOLELITHIASIS [None]
  - CONSTIPATION [None]
  - EOSINOPHIL COUNT INCREASED [None]
  - GALLBLADDER DISORDER [None]
  - GAMMA-GLUTAMYLTRANSFERASE INCREASED [None]
  - HEPATIC FUNCTION ABNORMAL [None]
  - HEPATITIS [None]
  - LIPASE INCREASED [None]
  - NEUTROPHIL COUNT INCREASED [None]
  - PYREXIA [None]
  - RENAL DISORDER [None]
  - SUBILEUS [None]
  - WHITE BLOOD CELL COUNT DECREASED [None]
